FAERS Safety Report 10207176 (Version 3)
Quarter: 2014Q3

REPORT INFORMATION
  Report Type: Spontaneous
  Country: US (occurrence: US)
  Receive Date: 20140530
  Receipt Date: 20140722
  Transmission Date: 20150326
  Serious: Yes (Hospitalization, Other)
  Sender: FDA-Public Use
  Company Number: US-009507513-1201USA00790

PATIENT
  Sex: Female

DRUGS (4)
  1. FOSAMAX [Suspect]
     Active Substance: ALENDRONATE SODIUM
     Dosage: 35 MG, UNK
     Route: 048
     Dates: start: 20070801, end: 20080202
  2. FOSAMAX [Suspect]
     Active Substance: ALENDRONATE SODIUM
     Dosage: 70 MG, QW
     Route: 048
     Dates: start: 2001, end: 201006
  3. ALENDRONATE SODIUM. [Suspect]
     Active Substance: ALENDRONATE SODIUM
     Indication: OSTEOPOROSIS
     Dosage: 70 MG, QW
     Route: 048
     Dates: start: 20080214
  4. FOSAMAX [Suspect]
     Active Substance: ALENDRONATE SODIUM
     Indication: OSTEOPOROSIS
     Dosage: 10 MG, UNK
     Route: 048
     Dates: start: 1995, end: 2001

REACTIONS (26)
  - Intramedullary rod insertion [Unknown]
  - Asthenia [Unknown]
  - Tooth extraction [Unknown]
  - Bursitis [Unknown]
  - Hypertension [Unknown]
  - Synovitis [Unknown]
  - Gastrooesophageal reflux disease [Unknown]
  - Coronary arterial stent insertion [Unknown]
  - Joint arthroplasty [Unknown]
  - Cholecystectomy [Unknown]
  - Thrombocytopenia [Unknown]
  - Vitamin D deficiency [Unknown]
  - Chronic obstructive pulmonary disease [Unknown]
  - Femur fracture [Unknown]
  - Intervertebral disc operation [Unknown]
  - Pain in extremity [Unknown]
  - Diabetes mellitus [Unknown]
  - Fall [Unknown]
  - Arteriosclerosis [Unknown]
  - Osteopenia [Unknown]
  - Intervertebral disc operation [Unknown]
  - Hyperlipidaemia [Unknown]
  - Inflammatory bowel disease [Unknown]
  - Coronary artery disease [Unknown]
  - Arthralgia [Unknown]
  - Hypertonic bladder [Unknown]

NARRATIVE: CASE EVENT DATE: 1997
